FAERS Safety Report 13576227 (Version 3)
Quarter: 2017Q3

REPORT INFORMATION
  Report Type: Report from Study
  Country: US (occurrence: US)
  Receive Date: 20170524
  Receipt Date: 20170929
  Transmission Date: 20171127
  Serious: No
  Sender: FDA-Public Use
  Company Number: PHEH2017US015343

PATIENT
  Sex: Female

DRUGS (1)
  1. AFINITOR [Suspect]
     Active Substance: EVEROLIMUS
     Indication: ANGIOMYOLIPOMA
     Dosage: 5 MG, QOD (EVERY OTHER DAY)
     Route: 048
     Dates: start: 20170508, end: 201706

REACTIONS (7)
  - Oropharyngeal pain [Unknown]
  - Diarrhoea [Unknown]
  - Stomatitis [Unknown]
  - Acne [Unknown]
  - Mouth ulceration [Unknown]
  - Fungal infection [Unknown]
  - Inappropriate schedule of drug administration [Unknown]
